FAERS Safety Report 8247697-6 (Version None)
Quarter: 2012Q1

REPORT INFORMATION
  Report Type: 
  Country: None (occurrence: None)
  Receive Date: 20120330
  Receipt Date: 20101021
  Transmission Date: 20120608
  Serious: Yes (Hospitalization)
  Sender: FDA-Public Use
  Company Number: US-GLAXOSMITHKLINE-A0889258A

PATIENT
  Age: 77 Year
  Sex: Male

DRUGS (1)
  1. ROSIGLITAZONE [Suspect]
     Indication: DIABETES MELLITUS
     Route: 048
     Dates: start: 20040127, end: 20060729

REACTIONS (4)
  - CORONARY ARTERY DISEASE [None]
  - ANGINA UNSTABLE [None]
  - ARRHYTHMIA [None]
  - CARDIAC DISORDER [None]
